FAERS Safety Report 20902149 (Version 6)
Quarter: 2022Q4

REPORT INFORMATION
  Report Type: Report from Study
  Country: CA (occurrence: CA)
  Receive Date: 20220601
  Receipt Date: 20221013
  Transmission Date: 20230113
  Serious: No
  Sender: FDA-Public Use
  Company Number: CA-JNJFOC-20220523677

PATIENT
  Sex: Male

DRUGS (18)
  1. SIMPONI [Suspect]
     Active Substance: GOLIMUMAB
     Indication: Ankylosing spondylitis
     Dosage: STRENGTH: 50.00 MG / 0.50 ML
     Route: 058
  2. SIMPONI [Suspect]
     Active Substance: GOLIMUMAB
  3. SIMPONI [Suspect]
     Active Substance: GOLIMUMAB
  4. SIMPONI [Suspect]
     Active Substance: GOLIMUMAB
  5. SIMPONI [Suspect]
     Active Substance: GOLIMUMAB
  6. SIMPONI [Suspect]
     Active Substance: GOLIMUMAB
  7. SIMPONI [Suspect]
     Active Substance: GOLIMUMAB
     Indication: Ankylosing spondylitis
     Dosage: STRENGTH: 50.00 MG / 0.50 ML
     Route: 058
  8. SIMPONI [Suspect]
     Active Substance: GOLIMUMAB
  9. SIMPONI [Suspect]
     Active Substance: GOLIMUMAB
  10. SIMPONI [Suspect]
     Active Substance: GOLIMUMAB
  11. SIMPONI [Suspect]
     Active Substance: GOLIMUMAB
  12. SIMPONI [Suspect]
     Active Substance: GOLIMUMAB
  13. SIMPONI [Suspect]
     Active Substance: GOLIMUMAB
     Indication: Ankylosing spondylitis
     Dosage: STRENGTH: 50.00 MG / 0.50 ML
     Route: 058
  14. SIMPONI [Suspect]
     Active Substance: GOLIMUMAB
  15. SIMPONI [Suspect]
     Active Substance: GOLIMUMAB
  16. SIMPONI [Suspect]
     Active Substance: GOLIMUMAB
  17. SIMPONI [Suspect]
     Active Substance: GOLIMUMAB
  18. SIMPONI [Suspect]
     Active Substance: GOLIMUMAB

REACTIONS (2)
  - Injection site haemorrhage [Unknown]
  - Needle issue [Unknown]
